FAERS Safety Report 5118197-7 (Version None)
Quarter: 2006Q3

REPORT INFORMATION
  Report Type: 
  Country: None (occurrence: None)
  Receive Date: 20060926
  Receipt Date: 20060912
  Transmission Date: 20061208
  Serious: Yes (Hospitalization)
  Sender: FDA-Public Use
  Company Number: JP200608004367

PATIENT
  Sex: Female

DRUGS (1)
  1. ZYPREXA [Suspect]
     Dosage: SEE IMAGE
     Route: 048

REACTIONS (2)
  - PARKINSONISM [None]
  - PSYCHOMOTOR HYPERACTIVITY [None]
